FAERS Safety Report 10991097 (Version 1)
Quarter: 2015Q2

REPORT INFORMATION
  Report Type: Spontaneous
  Country: IT (occurrence: IT)
  Receive Date: 20150406
  Receipt Date: 20150406
  Transmission Date: 20150821
  Serious: Yes (Death, Hospitalization)
  Sender: FDA-Public Use
  Company Number: IT-INTERMUNE, INC.-201503IM012784

PATIENT
  Age: 82 Year
  Sex: Male
  Weight: 60 kg

DRUGS (7)
  1. OXYGEN. [Concomitant]
     Active Substance: OXYGEN
     Dosage: 10L/MINI FLOW VMASK 35%
     Dates: start: 20140128
  2. OXYGEN. [Concomitant]
     Active Substance: OXYGEN
     Dosage: 5L, FLOW 28% VIA VMASK
     Dates: start: 20140622
  3. OXYGEN. [Concomitant]
     Active Substance: OXYGEN
     Dosage: 3L/MIN
     Dates: start: 20131007
  4. DRUGS USED IN BENIGN PROSTATIC HYPERTROPHY [Concomitant]
     Dosage: FOR 10 YEARS
  5. NASONEX [Concomitant]
     Active Substance: MOMETASONE FUROATE
     Dates: start: 20130409
  6. ESBRIET [Suspect]
     Active Substance: PIRFENIDONE
     Indication: IDIOPATHIC PULMONARY FIBROSIS
     Dosage: 2403 MG
     Route: 048
     Dates: start: 20130409, end: 201406
  7. ESBRIET [Suspect]
     Active Substance: PIRFENIDONE
     Dosage: 1602 MG
     Route: 048
     Dates: start: 201406, end: 20150315

REACTIONS (3)
  - Cardiac arrest [Fatal]
  - Condition aggravated [Fatal]
  - Hypercapnia [Fatal]

NARRATIVE: CASE EVENT DATE: 20150316
